FAERS Safety Report 4615101-2 (Version None)
Quarter: 2005Q1

REPORT INFORMATION
  Report Type: 
  Country: None (occurrence: None)
  Receive Date: 20050315
  Receipt Date: 20050309
  Transmission Date: 20050727
  Serious: Yes (Hospitalization)
  Sender: FDA-Public Use
  Company Number: US014853

PATIENT
  Age: 47 Year
  Sex: Female

DRUGS (1)
  1. PROVIGIL [Suspect]
     Indication: HYPERSOMNIA
     Dates: end: 20050201

REACTIONS (1)
  - PANCYTOPENIA [None]
